FAERS Safety Report 25272838 (Version 1)
Quarter: 2025Q2

REPORT INFORMATION
  Report Type: Spontaneous
  Country: US (occurrence: US)
  Receive Date: 20250506
  Receipt Date: 20250506
  Transmission Date: 20250717
  Serious: No
  Sender: UNITED THERAPEUTICS
  Company Number: US-UNITED THERAPEUTICS-UNT-2025-014642

PATIENT
  Age: 53 Year
  Sex: Male

DRUGS (2)
  1. ORENITRAM [Suspect]
     Active Substance: TREPROSTINIL
     Indication: Pulmonary arterial hypertension
     Dosage: 0.875 MG, TID
  2. ORENITRAM [Suspect]
     Active Substance: TREPROSTINIL

REACTIONS (3)
  - Respiratory tract congestion [Unknown]
  - Productive cough [Unknown]
  - Rhinorrhoea [Unknown]

NARRATIVE: CASE EVENT DATE: 20250420
